FAERS Safety Report 9782481 (Version 1)
Quarter: 2013Q4

REPORT INFORMATION
  Report Type: Spontaneous
  Country: FR (occurrence: FR)
  Receive Date: 20131226
  Receipt Date: 20131226
  Transmission Date: 20140711
  Serious: Yes (Hospitalization)
  Sender: FDA-Public Use
  Company Number: FR-JNJFOC-20131213932

PATIENT
  Age: 47 Year
  Sex: Female

DRUGS (3)
  1. SIMPONI ARIA [Suspect]
     Indication: PRODUCT USED FOR UNKNOWN INDICATION
     Route: 042
     Dates: start: 20131112
  2. SIMPONI ARIA [Suspect]
     Indication: PRODUCT USED FOR UNKNOWN INDICATION
     Route: 042
     Dates: start: 20131209
  3. SIMPONI ARIA [Suspect]
     Indication: PRODUCT USED FOR UNKNOWN INDICATION
     Route: 042
     Dates: start: 201211

REACTIONS (4)
  - Pain [Recovered/Resolved]
  - Purpura [Recovered/Resolved]
  - Inflammation [Recovered/Resolved]
  - Hypersensitivity vasculitis [Recovered/Resolved]
